FAERS Safety Report 10915878 (Version 1)
Quarter: 2015Q1

REPORT INFORMATION
  Report Type: Spontaneous
  Country: US (occurrence: None)
  Receive Date: 20150311
  Receipt Date: 20150311
  Transmission Date: 20150721
  Serious: Yes (Hospitalization)
  Sender: FDA-Public Use
  Company Number: None

PATIENT
  Age: 45 Year
  Sex: Male

DRUGS (1)
  1. KRYSTEXXA [Suspect]
     Active Substance: PEGLOTICASE
     Indication: GOUT
     Route: 042
     Dates: start: 20140311, end: 20140311

REACTIONS (6)
  - Chest pain [None]
  - Respiratory disorder [None]
  - Abdominal pain upper [None]
  - Chills [None]
  - Hyperhidrosis [None]
  - Hypersensitivity [None]

NARRATIVE: CASE EVENT DATE: 20140311
